FAERS Safety Report 7664917-7 (Version None)
Quarter: 2011Q3

REPORT INFORMATION
  Report Type: 
  Country: None (occurrence: None)
  Receive Date: 20110806
  Receipt Date: 20110110
  Transmission Date: 20111222
  Serious: No
  Sender: FDA-Public Use
  Company Number: US-ABBOTT-10P-163-0673565-00

PATIENT
  Sex: Male
  Weight: 90.8 kg

DRUGS (10)
  1. LIPITOR [Concomitant]
     Indication: PRODUCT USED FOR UNKNOWN INDICATION
  2. ASPIRIN [Concomitant]
     Indication: PROPHYLAXIS
  3. NIASPAN [Suspect]
     Indication: BLOOD CHOLESTEROL INCREASED
     Dosage: AT HOUR OF SLEEP
     Dates: start: 20100923
  4. ASPIRIN [Concomitant]
  5. NIASPAN [Suspect]
     Indication: BLOOD CHOLESTEROL INCREASED
     Dates: start: 20101229, end: 20110108
  6. DIOVAN [Concomitant]
     Indication: HYPERTENSION
  7. CARDIZEM [Concomitant]
     Indication: HYPERTENSION
  8. COENZYME Q10 [Concomitant]
     Indication: PRODUCT USED FOR UNKNOWN INDICATION
  9. MULTI-VITAMIN [Concomitant]
     Indication: PRODUCT USED FOR UNKNOWN INDICATION
  10. NIASPAN [Suspect]
     Dosage: EVERY NIGHT
     Dates: end: 20101228

REACTIONS (8)
  - FEELING HOT [None]
  - PRURITUS [None]
  - SKIN BURNING SENSATION [None]
  - VISION BLURRED [None]
  - FLUSHING [None]
  - HEADACHE [None]
  - DIARRHOEA [None]
  - PARAESTHESIA [None]
